FAERS Safety Report 8645699 (Version 2)
Quarter: 2012Q4

REPORT INFORMATION
  Report Type: Report from Study
  Country: FR (occurrence: FR)
  Receive Date: 20120702
  Receipt Date: 20120917
  Transmission Date: 20130627
  Serious: Yes (Other)
  Sender: FDA-Public Use
  Company Number: FR-PFIZER INC-2012152968

PATIENT
  Age: 37 Year
  Sex: Male
  Weight: 75 kg

DRUGS (3)
  1. ATGAM [Suspect]
     Dosage: 40 mg/kg, UNK
     Route: 042
     Dates: start: 20111118, end: 20111121
  2. CICLOSPORIN [Concomitant]
     Dosage: 175 mg, 1x/day
  3. CORTANCYL [Concomitant]

REACTIONS (3)
  - Cystitis klebsiella [Unknown]
  - Rotavirus infection [Unknown]
  - Clostridium test positive [Unknown]
